FAERS Safety Report 8274467-5 (Version None)
Quarter: 2012Q2

REPORT INFORMATION
  Report Type: 
  Country: None (occurrence: None)
  Receive Date: 20120411
  Receipt Date: 20120327
  Transmission Date: 20120825
  Serious: Yes (Hospitalization)
  Sender: FDA-Public Use
  Company Number: CH-ROCHE-1054520

PATIENT
  Age: 70 Year
  Sex: Female
  Weight: 49 kg

DRUGS (20)
  1. BISOPROLOL FUMARATE [Concomitant]
     Dates: start: 20120111
  2. MOTILIUM (SWITZERLAND) [Concomitant]
     Dosage: AS REQUIRED
     Route: 048
  3. RAMIPRIL [Interacting]
     Indication: PRODUCT USED FOR UNKNOWN INDICATION
     Route: 048
     Dates: end: 20120103
  4. AMOXICILLIN AND CLAVULANATE POTASSIUM [Concomitant]
     Indication: WOUND INFECTION
     Route: 042
     Dates: start: 20111223, end: 20111223
  5. TORSEMIDE [Interacting]
     Indication: PRODUCT USED FOR UNKNOWN INDICATION
     Route: 048
     Dates: start: 20111224, end: 20120103
  6. MARCUMAR [Concomitant]
     Route: 048
  7. PREDNISONE TAB [Concomitant]
     Route: 048
     Dates: start: 20111223
  8. PANTOPRAZOLE [Concomitant]
     Route: 048
  9. BISOPROLOL FUMARATE [Concomitant]
     Dates: start: 20120104
  10. ACETAMINOPHEN [Concomitant]
     Route: 048
     Dates: end: 20111228
  11. CIPROFLOXACIN HCL [Suspect]
     Indication: WOUND INFECTION
     Route: 048
     Dates: start: 20111223, end: 20120102
  12. ATORVASTATIN CALCIUM [Concomitant]
     Route: 048
  13. ROCALTROL [Concomitant]
     Route: 048
  14. BISOPROLOL FUMARATE [Concomitant]
     Route: 048
  15. METFORMIN HCL [Concomitant]
     Route: 048
     Dates: start: 20111229, end: 20111231
  16. ALDACTONE [Interacting]
     Indication: PRODUCT USED FOR UNKNOWN INDICATION
     Route: 048
     Dates: end: 20120104
  17. PREDNISONE TAB [Concomitant]
     Route: 048
  18. CORDARONE [Concomitant]
     Route: 048
  19. TORSEMIDE [Interacting]
     Dates: start: 20120113
  20. RAMIPRIL [Interacting]
     Route: 048
     Dates: start: 20120110

REACTIONS (4)
  - DRUG INTERACTION [None]
  - PROTEINURIA [None]
  - RENAL FAILURE ACUTE [None]
  - TUBULOINTERSTITIAL NEPHRITIS [None]
